FAERS Safety Report 6601031-3 (Version None)
Quarter: 2010Q1

REPORT INFORMATION
  Report Type: 
  Country: None (occurrence: None)
  Receive Date: 20100225
  Receipt Date: 20100216
  Transmission Date: 20100710
  Serious: Yes (Other)
  Sender: FDA-Public Use
  Company Number: US-JNJFOC-20100207725

PATIENT
  Sex: Female
  Weight: 91.17 kg

DRUGS (7)
  1. DURAGESIC-100 [Suspect]
     Indication: NEUROPATHY PERIPHERAL
     Route: 062
  2. DURAGESIC-100 [Suspect]
     Route: 062
  3. SINEMET [Concomitant]
     Indication: PARKINSON'S DISEASE
     Route: 048
  4. CELEBREX [Concomitant]
     Indication: ARTHRITIS
     Route: 048
  5. DARVON [Concomitant]
     Indication: AMYOTROPHIC LATERAL SCLEROSIS
     Route: 048
  6. RESTORIL [Concomitant]
     Indication: SLEEP DISORDER
     Route: 048
  7. WARFARIN SODIUM [Concomitant]
     Indication: THROMBOSIS
     Route: 048

REACTIONS (3)
  - AMYOTROPHIC LATERAL SCLEROSIS [None]
  - DRUG INEFFECTIVE [None]
  - PAIN IN EXTREMITY [None]
